FAERS Safety Report 10158474 (Version 2)
Quarter: 2014Q2

REPORT INFORMATION
  Report Type: Spontaneous
  Country: US (occurrence: US)
  Receive Date: 20140507
  Receipt Date: 20140507
  Transmission Date: 20141212
  Serious: No
  Sender: FDA-Public Use
  Company Number: US-AMGEN INC.-USASP2014018254

PATIENT
  Age: 88 Year
  Sex: Male

DRUGS (1)
  1. ARANESP [Suspect]
     Indication: ANAEMIA
     Dosage: 200 MUG, Q2WK
     Route: 058
     Dates: start: 20140310

REACTIONS (2)
  - Drug administration error [Unknown]
  - Injection site pain [Not Recovered/Not Resolved]
